FAERS Safety Report 18214860 (Version 2)
Quarter: 2021Q2

REPORT INFORMATION
  Report Type: Spontaneous
  Country: US (occurrence: US)
  Receive Date: 20200831
  Receipt Date: 20210610
  Transmission Date: 20210717
  Serious: No
  Sender: FDA-Public Use
  Company Number: US-GALDERMA-US19071116

PATIENT
  Age: 31 Year
  Sex: Male

DRUGS (3)
  1. UNSPECIFIED CLEANSER [Concomitant]
     Indication: PRODUCT USED FOR UNKNOWN INDICATION
  2. UNSPECIFIED MOISTURIZER [Concomitant]
     Active Substance: UNSPECIFIED INGREDIENT
     Indication: PRODUCT USED FOR UNKNOWN INDICATION
  3. EPIDUO FORTE [Suspect]
     Active Substance: ADAPALENE\BENZOYL PEROXIDE
     Indication: ACNE
     Dosage: 0.3%/2.5% (45G)
     Route: 061
     Dates: start: 20191010, end: 20191118

REACTIONS (2)
  - Erythema [Not Recovered/Not Resolved]
  - Skin irritation [Not Recovered/Not Resolved]

NARRATIVE: CASE EVENT DATE: 20191118
